FAERS Safety Report 5136230-3 (Version None)
Quarter: 2006Q4

REPORT INFORMATION
  Report Type: 
  Country: None (occurrence: None)
  Receive Date: 20061027
  Receipt Date: 20061018
  Transmission Date: 20070319
  Serious: Yes (Hospitalization)
  Sender: FDA-Public Use
  Company Number: AU-ROCHE-467853

PATIENT
  Sex: Male

DRUGS (1)
  1. XENICAL [Suspect]
     Indication: OBESITY
     Route: 065

REACTIONS (3)
  - ABDOMINAL PAIN UPPER [None]
  - CONSTIPATION [None]
  - DIARRHOEA [None]
